FAERS Safety Report 14582792 (Version 1)
Quarter: 2018Q1

REPORT INFORMATION
  Report Type: Spontaneous
  Country: US (occurrence: US)
  Receive Date: 20180228
  Receipt Date: 20180228
  Transmission Date: 20180509
  Serious: Yes (Hospitalization, Other)
  Sender: FDA-Public Use
  Company Number: US-WEST-WARD PHARMACEUTICALS CORP.-US-H14001-18-01282

PATIENT
  Age: 23 Year
  Sex: Female

DRUGS (14)
  1. KETOROLAC [Concomitant]
     Active Substance: KETOROLAC\KETOROLAC TROMETHAMINE
     Route: 042
  2. ACETAMINOPHEN. [Concomitant]
     Active Substance: ACETAMINOPHEN
     Indication: PAIN MANAGEMENT
  3. KETAMINE [Concomitant]
     Active Substance: KETAMINE
     Route: 048
  4. KETOROLAC [Concomitant]
     Active Substance: KETOROLAC\KETOROLAC TROMETHAMINE
     Indication: PAIN MANAGEMENT
  5. LORAZEPAM. [Concomitant]
     Active Substance: LORAZEPAM
     Indication: PAIN
  6. GABAPENTIN. [Concomitant]
     Active Substance: GABAPENTIN
     Indication: PAIN
     Route: 048
  7. FENTANYL. [Suspect]
     Active Substance: FENTANYL
  8. KETAMINE [Concomitant]
     Active Substance: KETAMINE
     Indication: PAIN MANAGEMENT
     Dosage: 5 MCG/KG/MIN
  9. FENTANYL. [Suspect]
     Active Substance: FENTANYL
     Indication: PAIN MANAGEMENT
  10. HYDROMORPHONE [Suspect]
     Active Substance: HYDROMORPHONE
  11. KETAMINE [Concomitant]
     Active Substance: KETAMINE
     Route: 041
  12. HYDROMORPHONE [Suspect]
     Active Substance: HYDROMORPHONE
     Indication: PAIN
     Dosage: 0.4-1.2 MG AS NEEDED
  13. BUPRENORPHINE. [Concomitant]
     Active Substance: BUPRENORPHINE
     Indication: PAIN
     Route: 060
  14. OXYCODONE [Concomitant]
     Active Substance: OXYCODONE
     Indication: PAIN MANAGEMENT
     Route: 048

REACTIONS (2)
  - Drug effect decreased [Unknown]
  - Hypoxia [Unknown]
